FAERS Safety Report 7386432 (Version 4)
Quarter: 2012Q4

REPORT INFORMATION
  Report Type: 
  Country: US (occurrence: US)
  Receive Date: 20100513
  Receipt Date: 20121105
  Transmission Date: 20130627
  Serious: Yes (Other)
  Sender: FDA-Public Use
  Company Number: PHEH2010US03435

PATIENT
  Age: 19 Year
  Sex: Male

DRUGS (7)
  1. TEGRETOL [Suspect]
     Indication: BIPOLAR DISORDER
     Dosage: 100 mg, BID
     Route: 048
     Dates: start: 20080908, end: 20080927
  2. TEGRETOL [Suspect]
     Indication: DEPRESSION
  3. ZOLOFT [Concomitant]
     Dosage: 75 mg, QD
  4. VISTARIL [Concomitant]
     Dosage: 50 mg, QD
  5. ATIVAN [Concomitant]
     Dosage: 1 mg, QD
  6. RESTORIL [Concomitant]
     Dosage: 30 mg, QD
  7. SEROQUEL [Concomitant]

REACTIONS (41)
  - Stevens-Johnson syndrome [Unknown]
  - Toxic epidermal necrolysis [Unknown]
  - Injury [Unknown]
  - Deformity [Unknown]
  - Pain [Unknown]
  - Disability [Unknown]
  - Mental disorder [Unknown]
  - Anhedonia [Unknown]
  - Decreased interest [Unknown]
  - Rash [Unknown]
  - Pruritus [Unknown]
  - Skin discolouration [Unknown]
  - Skin exfoliation [Unknown]
  - Alopecia [Unknown]
  - Nail disorder [Unknown]
  - Pigmentation disorder [Unknown]
  - Urticaria [Unknown]
  - Swelling [Unknown]
  - Skin lesion [Unknown]
  - Skin burning sensation [Unknown]
  - Mucous membrane disorder [Unknown]
  - Scar [Unknown]
  - Blindness [Unknown]
  - Internal injury [Unknown]
  - Hypersensitivity [Unknown]
  - Lip disorder [Unknown]
  - Throat lesion [Unknown]
  - Lip swelling [Unknown]
  - Oropharyngeal pain [Unknown]
  - Pyrexia [Unknown]
  - Ocular hyperaemia [Unknown]
  - Haematemesis [Unknown]
  - Vomiting [Unknown]
  - Vision blurred [Unknown]
  - Conjunctival haemorrhage [Unknown]
  - Blepharitis [Unknown]
  - Herpes simplex [Unknown]
  - Dehydration [Unknown]
  - Schizophrenia [Unknown]
  - Psychotic disorder [Unknown]
  - Hyponatraemia [Unknown]
